FAERS Safety Report 11384230 (Version 1)
Quarter: 2015Q3

REPORT INFORMATION
  Report Type: Spontaneous
  Country: US (occurrence: US)
  Receive Date: 20150811
  Receipt Date: 20150811
  Transmission Date: 20151125
  Serious: No
  Sender: FDA-Public Use
  Company Number: US-ELI_LILLY_AND_COMPANY-US201009004561

PATIENT
  Sex: Male

DRUGS (2)
  1. CIALIS [Suspect]
     Active Substance: TADALAFIL
     Dosage: 0.5 D/F, UNK
  2. CIALIS [Suspect]
     Active Substance: TADALAFIL
     Dosage: 1 D/F, DAILY (1/D)

REACTIONS (3)
  - Intentional product misuse [Unknown]
  - Muscle spasms [Unknown]
  - Nasal congestion [Unknown]
